FAERS Safety Report 6193424-6 (Version None)
Quarter: 2009Q2

REPORT INFORMATION
  Report Type: 
  Country: None (occurrence: None)
  Receive Date: 20090518
  Receipt Date: 20081022
  Transmission Date: 20091009
  Serious: No
  Sender: FDA-Public Use
  Company Number: US-ABBOTT-08P-163-0478944-00

PATIENT
  Sex: Male
  Weight: 54.48 kg

DRUGS (3)
  1. AZMACORT [Suspect]
     Indication: ALLERGIC BRONCHITIS
     Route: 055
     Dates: start: 20080406
  2. IPRATROPIUM BROMIDE [Concomitant]
     Indication: ALLERGIC BRONCHITIS
     Route: 055
  3. SALBUTAMOL [Concomitant]
     Indication: ALLERGIC BRONCHITIS
     Route: 055

REACTIONS (1)
  - DRUG EFFECT DECREASED [None]
